FAERS Safety Report 8234515-5 (Version None)
Quarter: 2012Q1

REPORT INFORMATION
  Report Type: 
  Country: None (occurrence: None)
  Receive Date: 20120326
  Receipt Date: 20120315
  Transmission Date: 20120608
  Serious: Yes (Life-Threatening)
  Sender: FDA-Public Use
  Company Number: NO-ROCHE-1049562

PATIENT
  Sex: Male

DRUGS (12)
  1. MABTHERA [Suspect]
     Indication: RHEUMATOID ARTHRITIS
     Dosage: 20110714 AND 20110729 MABTHERA ROUND 1 A+B
     Route: 042
     Dates: start: 20110714
  2. MABTHERA [Suspect]
     Dosage: FIRST INFUSION (A) ROUND 2.
     Route: 042
     Dates: start: 20120125, end: 20120207
  3. METOPROLOL SUCCINATE [Concomitant]
  4. IMDUR [Concomitant]
  5. INSULIN [Concomitant]
     Dosage: REPORTED AS INSULATARD FLEXPEN
  6. ASPIRIN [Concomitant]
  7. ORUDIS [Concomitant]
  8. TAMSULOSIN HCL [Concomitant]
  9. LIPITOR [Concomitant]
  10. CALCIGRAN FORTE [Concomitant]
  11. DIOVAN [Concomitant]
  12. OMEPRAZOLE [Concomitant]

REACTIONS (1)
  - MYOCARDIAL INFARCTION [None]
